FAERS Safety Report 6529595-9 (Version None)
Quarter: 2009Q4

REPORT INFORMATION
  Report Type: 
  Country: None (occurrence: None)
  Receive Date: 20091215
  Receipt Date: 20091201
  Transmission Date: 20100525
  Serious: Yes (Death)
  Sender: FDA-Public Use
  Company Number: THYM-1001276

PATIENT
  Age: 76 Year
  Sex: Male
  Weight: 55 kg

DRUGS (9)
  1. THYMOGLOBULIN [Suspect]
     Indication: APLASTIC ANAEMIA
     Dosage: 3.75 MG/KG, QD, INTRAVENOUS
     Route: 042
     Dates: start: 20090629, end: 20090703
  2. METHYLPREDNISOLONE [Concomitant]
  3. CYCLOSPORINE [Concomitant]
  4. VALACICLOVIR HYDROCHLORIDE (VALACICLOVIR HYDROCHLORIDE) [Concomitant]
  5. FILGRASTIM (FILGRASTIM) [Concomitant]
  6. LEVOFLOXACIN [Concomitant]
  7. LANSOPRAZOLE [Concomitant]
  8. MICAFUNGIN SODIUM (MICAFUNGIN SODIUM) [Concomitant]
  9. PREDNISOLONE ACETATE [Concomitant]

REACTIONS (8)
  - BRONCHOPULMONARY ASPERGILLOSIS [None]
  - CYTOMEGALOVIRUS TEST POSITIVE [None]
  - ENCEPHALITIS VIRAL [None]
  - EPSTEIN-BARR VIRUS ASSOCIATED LYMPHOPROLIFERATIVE DISORDER [None]
  - LACTIC ACIDOSIS [None]
  - LIVER DISORDER [None]
  - LYMPHOMA [None]
  - NO THERAPEUTIC RESPONSE [None]
